FAERS Safety Report 7618574-6 (Version None)
Quarter: 2011Q3

REPORT INFORMATION
  Report Type: 
  Country: None (occurrence: None)
  Receive Date: 20110718
  Receipt Date: 20110712
  Transmission Date: 20111222
  Serious: Yes (Other)
  Sender: FDA-Public Use
  Company Number: US-PFIZER INC-2011157543

PATIENT
  Sex: Female
  Weight: 45.351 kg

DRUGS (3)
  1. DETROL LA [Suspect]
     Indication: MICTURITION URGENCY
     Dosage: 4 MG, DAILY
  2. ESMOLOL [Concomitant]
     Indication: GASTROOESOPHAGEAL REFLUX DISEASE
     Dosage: UNK
  3. AMLODIPINE BESILATE [Concomitant]
     Indication: HYPERTENSION
     Dosage: 10 MG, DAILY

REACTIONS (4)
  - PARKINSONISM [None]
  - TARDIVE DYSKINESIA [None]
  - PNEUMONIA ASPIRATION [None]
  - COUGH [None]
